FAERS Safety Report 4333627-6 (Version None)
Quarter: 2004Q2

REPORT INFORMATION
  Report Type: 
  Country: None (occurrence: None)
  Receive Date: 20040405
  Receipt Date: 20040405
  Transmission Date: 20050107
  Serious: Yes (Other)
  Sender: FDA-Public Use
  Company Number: None

PATIENT
  Age: 61 Year
  Sex: Female

DRUGS (6)
  1. LEXAPRO [Suspect]
     Indication: HYPERTENSION
     Dosage: 5 MG PO
     Route: 048
     Dates: start: 20040319
  2. LORAZEPAM [Concomitant]
  3. NORVASC [Concomitant]
  4. TENONMIN [Concomitant]
  5. VISTARIL [Concomitant]
  6. PRILOSEC [Concomitant]

REACTIONS (5)
  - BURNING SENSATION [None]
  - DIARRHOEA [None]
  - MUSCULAR WEAKNESS [None]
  - NAUSEA [None]
  - THROAT TIGHTNESS [None]
